FAERS Safety Report 10082161 (Version 1)
Quarter: 2014Q2

REPORT INFORMATION
  Report Type: Spontaneous
  Country: CH (occurrence: CH)
  Receive Date: 20140416
  Receipt Date: 20140416
  Transmission Date: 20141212
  Serious: Yes (Other)
  Sender: FDA-Public Use
  Company Number: CH-PFIZER INC-2014101813

PATIENT
  Age: 24 Year
  Sex: Female

DRUGS (27)
  1. VINCRISTINE SULFATE [Suspect]
     Indication: EWING^S SARCOMA
     Dosage: 2 MG, FREQUENCY UNKNOWN (FIRST CYCLE)
     Dates: start: 20130920
  2. VINCRISTINE SULFATE [Suspect]
     Dosage: 2 MG, FREQUENCY UNKNOWN (SECOND CYCLE)
     Dates: start: 20131011
  3. VINCRISTINE SULFATE [Suspect]
     Dosage: 2 MG, FREQUENCY UNKNOWN (THIRD CYCLE)
     Dates: start: 20131105
  4. VINCRISTINE SULFATE [Suspect]
     Dosage: 2 MG, DAILY (ON DAY 1) (FOURTH CYCLE)
     Dates: start: 20131129
  5. VINCRISTINE SULFATE [Suspect]
     Dosage: 2 MG, DAILY (ON DAY 1) (FIFTH CYCLE)
     Dates: start: 20131227
  6. DOXORUBICIN HCL [Suspect]
     Indication: EWING^S SARCOMA
     Dosage: 20 MG/M2, DAILY (ON DAY 1 TO 3) (FIRST CYCLE)
     Dates: start: 20130920
  7. DOXORUBICIN HCL [Suspect]
     Dosage: 20 MG/M2, DAILY (ON DAY 1 TO 3) (SECOND CYCLE)
     Dates: start: 20131011
  8. DOXORUBICIN HCL [Suspect]
     Dosage: 20 MG/M2, DAILY (ON DAY 1 TO 3) (THIRD CYCLE)
     Dates: start: 20131105
  9. DOXORUBICIN HCL [Suspect]
     Dosage: 20 MG/M2, DAILY (ON DAY 1 TO 3) (FOURTH CYCLE)
     Dates: start: 20131129
  10. DOXORUBICIN HCL [Suspect]
     Dosage: 20 MG/M2, DAILY (ON DAY 1 TO 3) (FIFTH CYCLE)
     Dates: start: 20131227
  11. ETOPOSIDE [Suspect]
     Indication: EWING^S SARCOMA
     Dosage: 150 MG/M2, DAILY (ON DAY 1 TO 3) (FIRST CYCLE)
     Dates: start: 20130920
  12. ETOPOSIDE [Suspect]
     Dosage: 150 MG/M2, DAILY (ON DAY 1 TO 3) (SECOND CYCLE)
     Dates: start: 20131011
  13. ETOPOSIDE [Suspect]
     Dosage: 150 MG/M2, DAILY (ON DAY 1 TO 3) (THIRD CYCLE)
     Dates: start: 20131105
  14. ETOPOSIDE [Suspect]
     Dosage: 150 MG/M2, DAILY (ON DAY 1 TO 3) (FOURTH CYCLE)
     Dates: start: 20131129
  15. ETOPOSIDE [Suspect]
     Dosage: 150 MG/M2, DAILY (ON DAY 1 TO 3) (FIFTH CYCLE)
     Dates: start: 20131227
  16. IFOSFAMIDE [Suspect]
     Indication: EWING^S SARCOMA
     Dosage: 3000 MG/M2, DAILY (ON DAY 1 TO 3) (FIRST CYCLE)
     Dates: start: 20130920
  17. IFOSFAMIDE [Suspect]
     Dosage: 3000 MG/M2, DAILY (ON DAY 1 TO 3) (SECOND CYCLE)
     Dates: start: 20131011
  18. IFOSFAMIDE [Suspect]
     Dosage: 3000 MG/M2, DAILY (ON DAY 1 TO 3) (THIRD CYCLE)
     Dates: start: 20131105
  19. IFOSFAMIDE [Suspect]
     Dosage: 3000 MG/M2, DAILY (ON DAY 1 TO 3) (FOURTH CYCLE)
     Dates: start: 20131129
  20. IFOSFAMIDE [Suspect]
     Dosage: 3000 MG/M2, DAILY (ON DAY 1 TO 3) (FIFTH CYCLE)
     Dates: start: 20131227
  21. DEXAMETHASONE [Concomitant]
     Dosage: UNK
     Dates: end: 20140220
  22. BACTRIM [Concomitant]
     Dosage: 20 ML, THREE TIMES PER WEEK
  23. MAGNESIUM [Concomitant]
     Dosage: 300 MG, 3X/DAY
  24. ADDAMEL [Concomitant]
     Dosage: 1 DF, 1X/DAY
  25. CERNEVIT [Concomitant]
     Dosage: 1 DF, 1X/DAY
  26. SMOFKABIVEN [Concomitant]
     Dosage: 1000 ML, 1X/DAY
  27. KALIUMCHLORIDE [Concomitant]
     Dosage: 120 MMOL, 1X/DAY

REACTIONS (5)
  - Neutropenic sepsis [Unknown]
  - Escherichia bacteraemia [Unknown]
  - Enterobacter infection [Unknown]
  - Klebsiella infection [Unknown]
  - Pneumonia fungal [Unknown]
